FAERS Safety Report 8577154-9 (Version None)
Quarter: 2012Q3

REPORT INFORMATION
  Report Type: 
  Country: None (occurrence: None)
  Receive Date: 20120807
  Receipt Date: 20120802
  Transmission Date: 20120928
  Serious: Yes (Other)
  Sender: FDA-Public Use
  Company Number: JP-PFIZER INC-2012189931

PATIENT

DRUGS (3)
  1. ROHYPNOL [Suspect]
     Dosage: UNK
     Route: 048
  2. LEXOTAN [Suspect]
     Dosage: UNK
     Route: 048
  3. HALCION [Suspect]
     Dosage: UNK
     Route: 048

REACTIONS (1)
  - TOXICITY TO VARIOUS AGENTS [None]
